FAERS Safety Report 5155420-7 (Version None)
Quarter: 2006Q4

REPORT INFORMATION
  Report Type: 
  Country: None (occurrence: None)
  Receive Date: 20061121
  Receipt Date: 20061108
  Transmission Date: 20070319
  Serious: Yes (Hospitalization, Other)
  Sender: FDA-Public Use
  Company Number: DE-PURDUE-DEU_2006_0002627

PATIENT
  Age: 48 Year
  Sex: Female
  Weight: 48 kg

DRUGS (2)
  1. OXY/NALOX CR TABS VS OXY CR TABS [Suspect]
     Indication: BACK PAIN
     Dosage: 40 MG, DAILY
     Route: 048
     Dates: start: 20061103, end: 20061103
  2. OXY/NALOX CR TABS VS OXY CR TABS [Suspect]
     Dosage: 80 MG, DAILY
     Route: 048
     Dates: start: 20061024, end: 20061103

REACTIONS (1)
  - GRAND MAL CONVULSION [None]
